FAERS Safety Report 18040314 (Version 1)
Quarter: 2020Q3

REPORT INFORMATION
  Report Type: Spontaneous
  Country: GB (occurrence: GB)
  Receive Date: 20200717
  Receipt Date: 20200717
  Transmission Date: 20201103
  Serious: Yes (Life-Threatening, Hospitalization)
  Sender: FDA-Public Use
  Company Number: GB-BAUSCH-BL-2020-020334

PATIENT
  Age: 55 Year
  Sex: Female

DRUGS (1)
  1. MOVIPREP [Suspect]
     Active Substance: ASCORBIC ACID\POLYETHYLENE GLYCOL 3350\POTASSIUM CHLORIDE\SODIUM ASCORBATE\SODIUM CHLORIDE\SODIUM SULFATE
     Indication: BOWEL PREPARATION
     Dosage: (1 PACKAGE)
     Route: 048
     Dates: start: 20200625, end: 20200625

REACTIONS (13)
  - Cognitive disorder [Unknown]
  - Blood magnesium abnormal [Not Recovered/Not Resolved]
  - Dyspnoea [Recovering/Resolving]
  - Vomiting [Recovered/Resolved]
  - Rash [Unknown]
  - Blood sodium abnormal [Not Recovered/Not Resolved]
  - Palpitations [Recovering/Resolving]
  - Blood potassium abnormal [Not Recovered/Not Resolved]
  - Hallucination [Recovered/Resolved]
  - Joint swelling [Recovering/Resolving]
  - Blood calcium abnormal [Not Recovered/Not Resolved]
  - Abdominal distension [Recovering/Resolving]
  - Blood phosphorus abnormal [Not Recovered/Not Resolved]

NARRATIVE: CASE EVENT DATE: 20200625
